FAERS Safety Report 17941426 (Version 1)
Quarter: 2020Q2

REPORT INFORMATION
  Report Type: Spontaneous
  Country: US (occurrence: US)
  Receive Date: 20200624
  Receipt Date: 20200624
  Transmission Date: 20200714
  Serious: No
  Sender: FDA-Public Use
  Company Number: US-BLUEPRINT MEDICINES CORPORATION-SP-US-2020-000725

PATIENT
  Sex: Female

DRUGS (3)
  1. AYVAKIT [Suspect]
     Active Substance: AVAPRITINIB
     Route: 048
  2. AYVAKIT [Suspect]
     Active Substance: AVAPRITINIB
     Indication: GASTROINTESTINAL STROMAL TUMOUR
     Route: 048
  3. AYVAKIT [Suspect]
     Active Substance: AVAPRITINIB
     Route: 048

REACTIONS (6)
  - Hair colour changes [Recovering/Resolving]
  - Oedema [Recovering/Resolving]
  - Emotional distress [Recovering/Resolving]
  - Feeling cold [Recovering/Resolving]
  - Drug intolerance [Recovering/Resolving]
  - Cognitive disorder [Recovering/Resolving]
